FAERS Safety Report 8464888-X (Version None)
Quarter: 2012Q2

REPORT INFORMATION
  Report Type: 
  Country: None (occurrence: None)
  Receive Date: 20120626
  Receipt Date: 20120615
  Transmission Date: 20120825
  Serious: No
  Sender: FDA-Public Use
  Company Number: US-PFIZER INC-2012145018

PATIENT
  Sex: Female
  Weight: 78.5 kg

DRUGS (9)
  1. VITAMIN D [Concomitant]
     Dosage: 2000 UNK, UNK
  2. NIFEDIAC [Concomitant]
     Dosage: UNK
  3. AVAPRO [Concomitant]
     Dosage: UNK
  4. FISH OIL [Concomitant]
     Dosage: 360 MG, 2X/DAY
  5. ASMANEX TWISTHALER [Concomitant]
     Dosage: UNK
  6. SPIRIVA [Concomitant]
     Dosage: UNK
  7. PREMARIN [Suspect]
     Indication: ATROPHIC VULVOVAGINITIS
     Dosage: 0.05 G, 1X/DAY
     Route: 067
     Dates: start: 20120610
  8. LEVOTHYROXINE [Concomitant]
     Dosage: UNK
  9. PRILOSEC [Concomitant]
     Dosage: UNK, 2X/DAY

REACTIONS (4)
  - SUNBURN [None]
  - PHOTOSENSITIVITY REACTION [None]
  - BURNING SENSATION [None]
  - ERYTHEMA [None]
